FAERS Safety Report 17550693 (Version 1)
Quarter: 2020Q1

REPORT INFORMATION
  Report Type: Spontaneous
  Country: US (occurrence: US)
  Receive Date: 20200309
  Receipt Date: 20200309
  Transmission Date: 20200409
  Serious: Yes (Hospitalization)
  Sender: FDA-Public Use
  Company Number: None

PATIENT
  Age: 59 Year
  Sex: Female

DRUGS (16)
  1. AMLODIPINE TAB [Concomitant]
  2. METOCLOPRAM TAB [Concomitant]
  3. DICYCLOMINE CAP [Concomitant]
  4. FOLIC ACID. [Concomitant]
     Active Substance: FOLIC ACID
  5. MULTI VITAMIN TAB [Concomitant]
  6. VITAMIN D CAP [Concomitant]
     Dosage: ?          OTHER FREQUENCY:EVERY 2 WKS;?
     Route: 058
     Dates: start: 20180625
  7. HUMIRA [Suspect]
     Active Substance: ADALIMUMAB
     Indication: RHEUMATOID ARTHRITIS
     Dosage: ?          OTHER FREQUENCY:EVERY 2 WKS;?
     Route: 058
     Dates: start: 20180625
  8. PANTOPRAZOLE TAB [Concomitant]
  9. ONDANSETRON TAB [Concomitant]
  10. EXCEDRIN TAB [Concomitant]
  11. METOPROL SUC TAB [Concomitant]
  12. POT CHLORIDE CAP [Concomitant]
  13. IBUPROFEN TAB [Concomitant]
  14. METHOTREXATE. [Concomitant]
     Active Substance: METHOTREXATE
  15. TRAMADOL HCL TAB [Concomitant]
  16. AZITHROMYCIN TAB [Concomitant]

REACTIONS (3)
  - Infection [None]
  - Product dose omission [None]
  - Treatment noncompliance [None]
